FAERS Safety Report 18090825 (Version 1)
Quarter: 2020Q3

REPORT INFORMATION
  Report Type: Report from Study
  Country: None (occurrence: US)
  Receive Date: 20200730
  Receipt Date: 20200730
  Transmission Date: 20201103
  Serious: Yes (Hospitalization)
  Sender: FDA-Public Use
  Company Number: US-ABBVIE-20K-163-3349121-00

PATIENT
  Sex: Female
  Weight: 86.26 kg

DRUGS (2)
  1. ORILISSA [Suspect]
     Active Substance: ELAGOLIX SODIUM
     Indication: ENDOMETRIOSIS
     Route: 048
     Dates: start: 20200129, end: 20200601
  2. TRI?LO?SPRINTEC [Concomitant]
     Active Substance: ETHINYL ESTRADIOL\NORGESTIMATE
     Indication: ORAL CONTRACEPTION

REACTIONS (12)
  - Dysmenorrhoea [Recovered/Resolved]
  - Cyst [Recovered/Resolved]
  - Acne [Recovered/Resolved]
  - Mood altered [Not Recovered/Not Resolved]
  - Chapped lips [Recovered/Resolved]
  - Euphoric mood [Recovered/Resolved]
  - Hot flush [Recovered/Resolved]
  - Anxiety [Not Recovered/Not Resolved]
  - Oral mucosal blistering [Recovered/Resolved]
  - Dry mouth [Recovered/Resolved]
  - Initial insomnia [Not Recovered/Not Resolved]
  - Depression [Recovered/Resolved]

NARRATIVE: CASE EVENT DATE: 2020
